FAERS Safety Report 19485883 (Version 2)
Quarter: 2021Q3

REPORT INFORMATION
  Report Type: Spontaneous
  Country: US (occurrence: US)
  Receive Date: 20210702
  Receipt Date: 20210802
  Transmission Date: 20211014
  Serious: No
  Sender: FDA-Public Use
  Company Number: US-ASTRAZENECA-2021A497736

PATIENT
  Age: 72 Year
  Sex: Male
  Weight: 139.3 kg

DRUGS (1)
  1. BREZTRI AEROSPHERE [Suspect]
     Active Substance: BUDESONIDE\FORMOTEROL\GLYCOPYRRONIUM
     Indication: DYSPNOEA
     Dosage: BREZTRI 160 MCG/9 MCG/ 4.8 MCG, 2 PUFFS, TWICE DAILY
     Route: 055
     Dates: start: 2021

REACTIONS (7)
  - Dysphonia [Recovered/Resolved]
  - Speech disorder [Unknown]
  - Wrong technique in device usage process [Unknown]
  - Product use issue [Unknown]
  - Dyspnoea [Unknown]
  - Device delivery system issue [Unknown]
  - Intentional device misuse [Unknown]

NARRATIVE: CASE EVENT DATE: 2021
